FAERS Safety Report 7671086-6 (Version None)
Quarter: 2011Q3

REPORT INFORMATION
  Report Type: 
  Country: None (occurrence: None)
  Receive Date: 20110809
  Receipt Date: 20110730
  Transmission Date: 20111222
  Serious: Yes (Other)
  Sender: FDA-Public Use
  Company Number: DE-JNJFOC-20110800140

PATIENT
  Sex: Male
  Weight: 81 kg

DRUGS (2)
  1. RISPERDAL [Suspect]
     Indication: PRODUCT USED FOR UNKNOWN INDICATION
     Route: 048
     Dates: start: 20110729, end: 20110729
  2. RISPERDAL [Suspect]
     Route: 048

REACTIONS (3)
  - RESTLESSNESS [None]
  - TACHYCARDIA [None]
  - SUICIDE ATTEMPT [None]
